FAERS Safety Report 8916861 (Version 4)
Quarter: 2013Q1

REPORT INFORMATION
  Report Type: Spontaneous
  Country: US (occurrence: US)
  Receive Date: 20121120
  Receipt Date: 20130228
  Transmission Date: 20140127
  Serious: No
  Sender: FDA-Public Use
  Company Number: US-009507513-1211USA006737

PATIENT
  Age: 20 Year
  Sex: Female

DRUGS (1)
  1. NEXPLANON [Suspect]
     Indication: CONTRACEPTION
     Dosage: 1 UNK, UNK
     Route: 059
     Dates: start: 20121023, end: 20121023

REACTIONS (2)
  - Complication of device insertion [Unknown]
  - No adverse event [Unknown]
